FAERS Safety Report 10184848 (Version 3)
Quarter: 2014Q4

REPORT INFORMATION
  Report Type: Spontaneous
  Country: US (occurrence: None)
  Receive Date: 20140519
  Receipt Date: 20141006
  Transmission Date: 20150528
  Serious: Yes (Disabling)
  Sender: FDA-Public Use
  Company Number: UNT-2014-000133

PATIENT
  Age: 82 Year
  Sex: Female
  Weight: 88.4 kg

DRUGS (4)
  1. AMBRISENTAN (AMBRISENTAN) [Concomitant]
     Active Substance: AMBRISENTAN
  2. MACITENTAN (MACITENTAN) [Concomitant]
  3. TYVASO [Suspect]
     Active Substance: TREPROSTINIL
     Indication: PULMONARY ARTERIAL HYPERTENSION
     Dosage: 18 TO 54 MICROGRAMS (3 TO 9 BREATHS)
     Route: 055
     Dates: start: 20130812
  4. TADALAFIL (TADALAFIL) [Concomitant]

REACTIONS (3)
  - Dyspnoea [None]
  - Drug ineffective [None]
  - Arterial stenosis [None]

NARRATIVE: CASE EVENT DATE: 201304
